FAERS Safety Report 12162944 (Version 1)
Quarter: 2016Q1

REPORT INFORMATION
  Report Type: Spontaneous
  Country: BR (occurrence: BR)
  Receive Date: 20160309
  Receipt Date: 20160309
  Transmission Date: 20160526
  Serious: Yes (Hospitalization, Other)
  Sender: FDA-Public Use
  Company Number: BR-ELI_LILLY_AND_COMPANY-BR201603002102

PATIENT
  Sex: Male
  Weight: 110 kg

DRUGS (1)
  1. HUMULIN N [Suspect]
     Active Substance: INSULIN HUMAN
     Indication: PRODUCT USED FOR UNKNOWN INDICATION
     Dosage: 40 IU, QD
     Route: 058
     Dates: start: 2013

REACTIONS (9)
  - Klebsiella infection [Unknown]
  - Hypoglycaemia [Unknown]
  - Accident [Unknown]
  - Necrosis [Recovering/Resolving]
  - Blood glucose increased [Unknown]
  - Fall [Unknown]
  - Incorrect dose administered [Unknown]
  - Diabetic hyperglycaemic coma [Recovered/Resolved]
  - Motor dysfunction [Recovering/Resolving]

NARRATIVE: CASE EVENT DATE: 2015
